FAERS Safety Report 17277764 (Version 1)
Quarter: 2020Q1

REPORT INFORMATION
  Report Type: Spontaneous
  Country: US (occurrence: US)
  Receive Date: 20191227
  Receipt Date: 20191227
  Transmission Date: 20200409
  Serious: No
  Sender: FDA-Public Use
  Company Number: None

PATIENT
  Age: 35 Year
  Sex: Female

DRUGS (1)
  1. STELARA [Suspect]
     Active Substance: USTEKINUMAB
     Indication: GASTROINTESTINAL INFLAMMATION
     Dosage: 90MG Q8W SQ
     Route: 058
     Dates: start: 20190623

REACTIONS (4)
  - Vision blurred [None]
  - Erythema [None]
  - Peripheral swelling [None]
  - Confusional state [None]

NARRATIVE: CASE EVENT DATE: 201912
